FAERS Safety Report 9774902 (Version 1)
Quarter: 2013Q4

REPORT INFORMATION
  Report Type: Spontaneous
  Country: US (occurrence: US)
  Receive Date: 20131220
  Receipt Date: 20131220
  Transmission Date: 20140711
  Serious: No
  Sender: FDA-Public Use
  Company Number: US-GLAXOSMITHKLINE-A1012244A

PATIENT
  Age: 85 Year
  Sex: Male

DRUGS (5)
  1. AVODART [Suspect]
     Indication: NOCTURIA
     Dosage: .5MG PER DAY
     Route: 048
     Dates: start: 20121215, end: 20130211
  2. SIMVASTATIN [Concomitant]
  3. LISINOPRIL [Concomitant]
  4. COUMADIN [Concomitant]
  5. PRIMIDONE [Concomitant]

REACTIONS (12)
  - Depression [Unknown]
  - Lethargy [Unknown]
  - Dizziness [Unknown]
  - Nausea [Unknown]
  - Heart rate increased [Unknown]
  - Confusional state [Unknown]
  - Decreased appetite [Unknown]
  - Adverse drug reaction [Unknown]
  - Ill-defined disorder [Unknown]
  - Feeling abnormal [Unknown]
  - Asthenia [Unknown]
  - Dyspnoea exertional [Not Recovered/Not Resolved]
